FAERS Safety Report 5625269-7 (Version None)
Quarter: 2008Q1

REPORT INFORMATION
  Report Type: 
  Country: None (occurrence: None)
  Receive Date: 20080208
  Receipt Date: 20080208
  Transmission Date: 20080703
  Serious: Yes (Death, Hospitalization, Other)
  Sender: FDA-Public Use
  Company Number: 100#08#2008-00550

PATIENT
  Age: 64 Year
  Sex: Female

DRUGS (6)
  1. CEFTAZIDIME [Suspect]
     Indication: ACUTE MYELOID LEUKAEMIA
     Dosage: 1 G HOURLY
  2. CIPROFLOXACIN [Suspect]
     Indication: DRUG USE FOR UNKNOWN INDICATION
  3. ISONIAZID [Suspect]
     Indication: DRUG USE FOR UNKNOWN INDICATION
  4. FLUCLOXACILLIN SODIUM (FLUCLOXACILLIN) [Suspect]
     Indication: DRUG USE FOR UNKNOWN INDICATION
     Dosage: 500 MG EVERY 6 HOURS
  5. RIFAMPICIN [Suspect]
     Indication: DRUG USE FOR UNKNOWN INDICATION
     Dosage: 300 MG
  6. PYRAZINAMIDE [Concomitant]

REACTIONS (13)
  - BLISTER [None]
  - BLOOD CULTURE POSITIVE [None]
  - CEREBROVASCULAR ACCIDENT [None]
  - DIARRHOEA [None]
  - DISEASE PROGRESSION [None]
  - ECTHYMA [None]
  - ENDOCARDITIS CANDIDA [None]
  - ERYTHEMA [None]
  - FUNGAL SEPSIS [None]
  - PSEUDOMONAS INFECTION [None]
  - PURPURA [None]
  - STAPHYLOCOCCAL INFECTION [None]
  - VOMITING [None]
